FAERS Safety Report 11410617 (Version 1)
Quarter: 2015Q3

REPORT INFORMATION
  Report Type: Spontaneous
  Country: HR (occurrence: HR)
  Receive Date: 20150824
  Receipt Date: 20150824
  Transmission Date: 20151125
  Serious: Yes (Other)
  Sender: FDA-Public Use
  Company Number: HR-PFIZER INC-2015276945

PATIENT
  Age: 49 Year
  Sex: Female
  Weight: 68 kg

DRUGS (1)
  1. SALAZOPYRIN EN [Suspect]
     Active Substance: SULFASALAZINE
     Indication: SPONDYLITIS
     Dosage: 1000 MG; 2X2 TBL
     Route: 048
     Dates: start: 20140901, end: 20141101

REACTIONS (3)
  - Vertigo [Recovered/Resolved]
  - Dizziness [Recovered/Resolved]
  - Nausea [Recovered/Resolved]

NARRATIVE: CASE EVENT DATE: 20140901
